FAERS Safety Report 7130225-6 (Version None)
Quarter: 2010Q4

REPORT INFORMATION
  Report Type: 
  Country: None (occurrence: None)
  Receive Date: 20101201
  Receipt Date: 20101122
  Transmission Date: 20110411
  Serious: Yes (Hospitalization, Other)
  Sender: FDA-Public Use
  Company Number: US-JNJFOC-20101104826

PATIENT

DRUGS (1)
  1. LEVAQUIN [Suspect]
     Indication: URINARY TRACT INFECTION
     Route: 048

REACTIONS (4)
  - CARPAL TUNNEL SYNDROME [None]
  - MUSCLE RUPTURE [None]
  - ROTATOR CUFF SYNDROME [None]
  - TENOSYNOVITIS [None]
